FAERS Safety Report 14764033 (Version 1)
Quarter: 2018Q2

REPORT INFORMATION
  Report Type: Spontaneous
  Country: US (occurrence: US)
  Receive Date: 20180410
  Receipt Date: 20180410
  Transmission Date: 20180711
  Serious: No
  Sender: FDA-Public Use
  Company Number: None

PATIENT
  Age: 69 Year
  Sex: Female

DRUGS (7)
  1. OCALIVA [Suspect]
     Active Substance: OBETICHOLIC ACID
     Indication: BILIARY CIRRHOSIS
     Route: 048
     Dates: start: 20170311
  2. TEMAZEPAM. [Concomitant]
     Active Substance: TEMAZEPAM
  3. MIRTAZAPINE. [Concomitant]
     Active Substance: MIRTAZAPINE
  4. CLONAZEPAM. [Concomitant]
     Active Substance: CLONAZEPAM
  5. SIMVASTATIN. [Concomitant]
     Active Substance: SIMVASTATIN
  6. DULOXETINE. [Concomitant]
     Active Substance: DULOXETINE
  7. LOSARTAN. [Concomitant]
     Active Substance: LOSARTAN

REACTIONS (1)
  - Confusional state [None]

NARRATIVE: CASE EVENT DATE: 201712
